FAERS Safety Report 23220962 (Version 1)
Quarter: 2023Q4

REPORT INFORMATION
  Report Type: Spontaneous
  Country: US (occurrence: US)
  Receive Date: 20231123
  Receipt Date: 20231123
  Transmission Date: 20240110
  Serious: Yes (Other)
  Sender: FDA-Public Use
  Company Number: US-BRISTOL-MYERS SQUIBB COMPANY-2023-168771

PATIENT
  Age: 58 Year
  Sex: Male
  Weight: 104.7 kg

DRUGS (3)
  1. REVLIMID [Suspect]
     Active Substance: LENALIDOMIDE
     Indication: Plasma cell myeloma
     Dosage: DOSE : 10MG; FREQ : DAILY  AT BEDTIME 21 DAYS ON 7 DAYS OFF
     Dates: start: 20230817, end: 20231019
  2. ELOTUZUMAB [Concomitant]
     Active Substance: ELOTUZUMAB
     Indication: Product used for unknown indication
  3. DEXAMETHASONE [Concomitant]
     Active Substance: DEXAMETHASONE
     Indication: Product used for unknown indication

REACTIONS (1)
  - Drug ineffective [Unknown]
